FAERS Safety Report 4714195-3 (Version None)
Quarter: 2005Q2

REPORT INFORMATION
  Report Type: 
  Country: None (occurrence: None)
  Receive Date: 20050630
  Receipt Date: 20050111
  Transmission Date: 20051028
  Serious: No
  Sender: FDA-Public Use
  Company Number: 392326

PATIENT
  Age: 49 Year
  Sex: Male
  Weight: 63.5 kg

DRUGS (4)
  1. KLONOPIN [Suspect]
     Indication: ANXIETY
     Dosage: 5 MG DAILY ORAL
     Route: 048
     Dates: start: 20041022, end: 20041022
  2. TRAZODONE (TRAZODONE HYDROCHLORIDE) [Concomitant]
  3. DEPAKOTE [Concomitant]
  4. SEROQUEL [Concomitant]

REACTIONS (6)
  - ABASIA [None]
  - DYSARTHRIA [None]
  - MEDICATION ERROR [None]
  - OVERDOSE [None]
  - SEDATION [None]
  - SPEECH DISORDER [None]
